FAERS Safety Report 11325053 (Version 1)
Quarter: 2015Q3

REPORT INFORMATION
  Report Type: Report from Study
  Country: US (occurrence: US)
  Receive Date: 20150730
  Receipt Date: 20150730
  Transmission Date: 20151125
  Serious: No
  Sender: FDA-Public Use
  Company Number: US-BAXALTA-2015BAX024957

PATIENT
  Sex: Female

DRUGS (3)
  1. XIFAXAN [Concomitant]
     Active Substance: RIFAXIMIN
     Indication: SMALL INTESTINAL BACTERIAL OVERGROWTH
     Dosage: 550 MG, 3X A DAY FOR 14 DAYS
     Route: 048
     Dates: start: 20150713
  2. HUMAN NORMAL IMMUNOGLOBULIN; HYALURONIDASE [Suspect]
     Active Substance: HUMAN IMMUNOGLOBULIN G\HYALURONIDASE RECOMBINANT HUMAN
     Indication: IMMUNODEFICIENCY COMMON VARIABLE
     Dosage: 38 G, EVERY 3 WK
     Route: 058
     Dates: start: 20150430
  3. NEOMYCIN [Concomitant]
     Active Substance: NEOMYCIN
     Indication: SMALL INTESTINAL BACTERIAL OVERGROWTH
     Dosage: 500 MG, 2X A DAY FPR 14 DAYS
     Route: 048
     Dates: start: 20150713

REACTIONS (3)
  - Asthenia [Recovering/Resolving]
  - Feeling abnormal [Unknown]
  - Fatigue [Recovering/Resolving]
